FAERS Safety Report 5291509-X (Version None)
Quarter: 2007Q2

REPORT INFORMATION
  Report Type: 
  Country: None (occurrence: None)
  Receive Date: 20070403
  Receipt Date: 20070319
  Transmission Date: 20071010
  Serious: Yes (Hospitalization)
  Sender: FDA-Public Use
  Company Number: T200700330

PATIENT
  Age: 72 Year
  Sex: Female

DRUGS (2)
  1. ULTRA-TECHNEKOW [Suspect]
     Indication: BONE SCAN
     Dosage: 30 MCI, SINGLE, INTRAVENOUS
     Route: 042
     Dates: start: 20070301, end: 20070301
  2. TECHNESCAN HDP (KIT FOR THE PREPARATION OF TECHNETIUM (TC 99M) OXIDRON [Suspect]
     Indication: BONE SCAN
     Dosage: SINGLE, INTRAVENOUS
     Route: 042
     Dates: start: 20070301, end: 20070301

REACTIONS (4)
  - DIARRHOEA [None]
  - LETHARGY [None]
  - NIGHT SWEATS [None]
  - PYREXIA [None]
